FAERS Safety Report 23084413 (Version 1)
Quarter: 2023Q4

REPORT INFORMATION
  Report Type: Spontaneous
  Country: US (occurrence: None)
  Receive Date: 20231019
  Receipt Date: 20231019
  Transmission Date: 20240110
  Serious: Yes (Life-Threatening, Hospitalization, Other)
  Sender: FDA-Public Use
  Company Number: None

PATIENT
  Age: 69 Year
  Sex: Female
  Weight: 68.2 kg

DRUGS (17)
  1. PRALUENT [Suspect]
     Active Substance: ALIROCUMAB
     Indication: Hyperlipidaemia
     Dosage: FREQUENCY : EVERY OTHER WEEK;?
     Route: 058
     Dates: start: 20180621, end: 20231010
  2. AMILORIDE [Concomitant]
     Active Substance: AMILORIDE
  3. BUPRENORPHINE [Concomitant]
     Active Substance: BUPRENORPHINE
  4. CALCIUM\VITAMIN D [Concomitant]
     Active Substance: CALCIUM\VITAMIN D
  5. COENZYME Q10 [Concomitant]
     Active Substance: DIETARY SUPPLEMENT\UBIDECARENONE
  6. DEXLANSOPRAZOLE [Concomitant]
     Active Substance: DEXLANSOPRAZOLE
  7. DOCUSATE [Concomitant]
     Active Substance: DOCUSATE
  8. FUROSEMIDE [Concomitant]
     Active Substance: FUROSEMIDE
     Dates: start: 20200813
  9. GALCANEZUMAB-GNLM [Concomitant]
     Active Substance: GALCANEZUMAB-GNLM
     Dates: start: 20230814
  10. HYOSCYAMINE [Concomitant]
     Active Substance: HYOSCYAMINE
     Dates: start: 20230720
  11. Multivitamin (adult gummy) [Concomitant]
  12. NABUMETONE [Concomitant]
     Active Substance: NABUMETONE
     Dates: start: 20230630
  13. ONDANSETRON [Concomitant]
     Active Substance: ONDANSETRON
     Dates: start: 20200823
  14. QULIPTA [Concomitant]
     Active Substance: ATOGEPANT
     Dates: start: 20230712
  15. TRAMADOL [Concomitant]
     Active Substance: TRAMADOL\TRAMADOL HYDROCHLORIDE
  16. UBRELVY [Concomitant]
     Active Substance: UBROGEPANT
  17. Ztildo [Concomitant]
     Dates: start: 20230505

REACTIONS (11)
  - Rash [None]
  - Pruritus [None]
  - Therapeutic product effect decreased [None]
  - Muscle spasms [None]
  - Pruritus [None]
  - Loss of consciousness [None]
  - Eye injury [None]
  - Hypotension [None]
  - Acute kidney injury [None]
  - Hyponatraemia [None]
  - Dehydration [None]

NARRATIVE: CASE EVENT DATE: 20230930
